FAERS Safety Report 14460422 (Version 3)
Quarter: 2020Q1

REPORT INFORMATION
  Report Type: Other
  Country: US (occurrence: US)
  Receive Date: 20180130
  Receipt Date: 20200126
  Transmission Date: 20200409
  Serious: No
  Sender: FDA-Public Use
  Company Number: US-ACORDA-ACO_140856_2017

PATIENT
  Sex: Male

DRUGS (1)
  1. AMPYRA [Suspect]
     Active Substance: DALFAMPRIDINE
     Indication: PRODUCT USED FOR UNKNOWN INDICATION
     Dosage: 10 MG, BID (Q12H)
     Route: 048
     Dates: start: 20160422

REACTIONS (8)
  - Depression [Unknown]
  - Therapy cessation [Unknown]
  - Condition aggravated [Unknown]
  - Multiple sclerosis [Unknown]
  - Product dose omission [Unknown]
  - Fatigue [Unknown]
  - Gait disturbance [Unknown]
  - Memory impairment [Unknown]
